FAERS Safety Report 5493299-4 (Version None)
Quarter: 2007Q4

REPORT INFORMATION
  Report Type: 
  Country: None (occurrence: None)
  Receive Date: 20071023
  Receipt Date: 20061003
  Transmission Date: 20080405
  Serious: No
  Sender: FDA-Public Use
  Company Number: US-BRISTOL-MYERS SQUIBB COMPANY-13530571

PATIENT
  Age: 21 Year
  Sex: Female

DRUGS (4)
  1. KENALOG-40 [Suspect]
     Indication: DERMATITIS
     Dosage: RECEIVED KENALOG-40, 80 MG INTRAMUSCULARLY INTO HER LEFT GLUTEUS MUSCLE ONE TIME IN MAY 2006
     Route: 030
     Dates: start: 20060501
  2. CLINDAMYCIN HCL [Concomitant]
  3. ZYRTEC [Concomitant]
  4. ORTHO TRI-CYCLEN [Concomitant]

REACTIONS (1)
  - MUSCLE ATROPHY [None]
